FAERS Safety Report 8163311-2 (Version None)
Quarter: 2012Q1

REPORT INFORMATION
  Report Type: 
  Country: None (occurrence: None)
  Receive Date: 20120224
  Receipt Date: 20110519
  Transmission Date: 20120608
  Serious: No
  Sender: FDA-Public Use
  Company Number: US-PFIZER INC-K201100622

PATIENT
  Age: 60 Year
  Sex: Male
  Weight: 88.435 kg

DRUGS (15)
  1. DILAUDID [Concomitant]
     Indication: BACK PAIN
     Dosage: UNK
     Route: 048
  2. CELEBREX [Concomitant]
     Indication: NECK PAIN
  3. METHOTREXATE [Concomitant]
     Indication: ARTHRITIS
     Dosage: UNK
     Route: 048
  4. FLECTOR [Suspect]
     Indication: NECK PAIN
     Dosage: 1 PATCH, PRN
     Route: 061
     Dates: start: 20110101, end: 20110101
  5. NEURONTIN [Concomitant]
     Dosage: UNK
     Route: 048
  6. MS CONTIN [Concomitant]
     Indication: NECK PAIN
  7. CELEBREX [Concomitant]
     Indication: BACK PAIN
     Dosage: UNK
     Route: 048
  8. FLEXERIL [Concomitant]
     Dosage: UNK
     Route: 048
  9. DILAUDID [Concomitant]
     Indication: NECK PAIN
  10. VOLTAREN [Concomitant]
     Indication: NECK PAIN
  11. PREDNISONE [Concomitant]
     Dosage: UNK
     Route: 048
  12. MS CONTIN [Concomitant]
     Indication: BACK PAIN
     Dosage: UNK
     Route: 048
  13. FLECTOR [Suspect]
     Indication: BACK PAIN
     Dosage: 1 PATCH, PRN
     Route: 061
     Dates: start: 20100101, end: 20110101
  14. VOLTAREN [Concomitant]
     Indication: BACK PAIN
     Dosage: UNK
     Route: 061
  15. AMLODIPINE [Concomitant]
     Dosage: UNK
     Route: 048

REACTIONS (6)
  - APPLICATION SITE REACTION [None]
  - APPLICATION SITE HYPERSENSITIVITY [None]
  - APPLICATION SITE INFLAMMATION [None]
  - HERPES ZOSTER [None]
  - APPLICATION SITE ERYTHEMA [None]
  - APPLICATION SITE PRURITUS [None]
